FAERS Safety Report 6943045-X (Version None)
Quarter: 2010Q3

REPORT INFORMATION
  Report Type: 
  Country: None (occurrence: None)
  Receive Date: 20100826
  Receipt Date: 20100818
  Transmission Date: 20110219
  Serious: Yes (Life-Threatening, Other)
  Sender: FDA-Public Use
  Company Number: SE-JNJFOC-20100805966

PATIENT
  Age: 63 Year
  Sex: Male

DRUGS (3)
  1. REMICADE [Suspect]
     Indication: ARTHRITIS
  2. HUMIRA [Suspect]
     Indication: ARTHRITIS
  3. METHOTREXATE [Suspect]
     Indication: ARTHRITIS

REACTIONS (1)
  - MALIGNANT RESPIRATORY TRACT NEOPLASM [None]
